FAERS Safety Report 25224908 (Version 7)
Quarter: 2025Q3

REPORT INFORMATION
  Report Type: Spontaneous
  Country: US (occurrence: US)
  Receive Date: 20250422
  Receipt Date: 20250723
  Transmission Date: 20251021
  Serious: No
  Sender: PFIZER
  Company Number: US-PFIZER INC-202500082564

PATIENT
  Age: 15 Year
  Sex: Male

DRUGS (2)
  1. GENOTROPIN [Suspect]
     Active Substance: SOMATROPIN
     Dosage: 1.6 MG, DAILY (NIGHTLY)
     Dates: start: 202504
  2. GENOTROPIN [Suspect]
     Active Substance: SOMATROPIN

REACTIONS (5)
  - Incorrect dose administered by device [Unknown]
  - Drug dose omission by device [Unknown]
  - Liquid product physical issue [Unknown]
  - Device breakage [Unknown]
  - Liquid product physical issue [Unknown]

NARRATIVE: CASE EVENT DATE: 20250415
